FAERS Safety Report 20026208 (Version 3)
Quarter: 2021Q4

REPORT INFORMATION
  Report Type: Spontaneous
  Country: US (occurrence: US)
  Receive Date: 20211102
  Receipt Date: 20211201
  Transmission Date: 20220303
  Serious: Yes (Hospitalization)
  Sender: FDA-Public Use
  Company Number: US-RIGEL PHARMACEUTICALS, INC.-2021FOS000726

PATIENT
  Sex: Female

DRUGS (1)
  1. TAVALISSE [Suspect]
     Active Substance: FOSTAMATINIB
     Indication: Immune thrombocytopenia
     Dosage: 100 MG, BID
     Route: 048
     Dates: start: 20211018, end: 202110

REACTIONS (14)
  - Infection [Unknown]
  - Cardiac failure congestive [Unknown]
  - Hospitalisation [Unknown]
  - Migraine [Unknown]
  - Constipation [Unknown]
  - Back pain [Unknown]
  - Vaccination complication [Unknown]
  - Platelet count decreased [Unknown]
  - Platelet count [Unknown]
  - Product dose omission issue [Unknown]
  - Dizziness [Unknown]
  - Blood pressure increased [Unknown]
  - Nausea [Unknown]
  - Abdominal pain [Unknown]

NARRATIVE: CASE EVENT DATE: 20210101
